FAERS Safety Report 10143728 (Version 2)
Quarter: 2014Q2

REPORT INFORMATION
  Report Type: Spontaneous
  Country: BR (occurrence: BR)
  Receive Date: 20140430
  Receipt Date: 20140526
  Transmission Date: 20141212
  Serious: Yes (Hospitalization, Other)
  Sender: FDA-Public Use
  Company Number: BR-PFIZER INC-2014117386

PATIENT
  Age: 65 Year
  Sex: Female
  Weight: 82 kg

DRUGS (11)
  1. ZOLOFT [Suspect]
     Indication: DEPRESSION
     Dosage: 50 MG (ONE TABLET), 1X/DAY
     Route: 048
  2. ZOLOFT [Suspect]
     Dosage: 100 MG, UNK
     Route: 048
  3. LIPITOR [Suspect]
     Indication: BLOOD CHOLESTEROL ABNORMAL
     Dosage: 40 MG (ONE TABLET), 1X/DAY
     Route: 048
     Dates: start: 20051104
  4. ASPIRINA PREVENT [Concomitant]
     Indication: ANTICOAGULANT THERAPY
     Dosage: AT TWO UNITS OF UNSPECIFIED DOSAGE AND FREQUENCY
     Dates: start: 2004
  5. CAPTOPRIL [Concomitant]
     Indication: ANTICOAGULANT THERAPY
     Dosage: ONE UNIT OF UNSPECIFIED DOSAGE ONCE DAILY
     Dates: start: 2008
  6. CEBRALAT [Concomitant]
     Indication: DEPRESSION
     Dosage: ONE UNIT OF UNSPECIFIED DOSAGE, ONCE DAILY
     Dates: start: 2011
  7. CEBRALAT [Concomitant]
     Indication: DIABETES MELLITUS
  8. DIOVAN [Concomitant]
     Indication: HYPERTENSION
     Dosage: ONE UNIT OF UNSPECIFIED DOSAGE, ONCE DAILY
     Dates: start: 2004
  9. INSULIN [Concomitant]
     Indication: DIABETES MELLITUS
     Dosage: UNSPECIFIED DOSAGE, 2X/DAY
     Dates: start: 1999
  10. NEUTROFER [Concomitant]
     Indication: ANAEMIA
     Dosage: ONE UNIT OF UNSPECIFIED DOSAGE, ONCE DAILY
     Dates: start: 2009
  11. ROSUVASTATIN CALCIUM [Concomitant]
     Indication: BLOOD CHOLESTEROL ABNORMAL
     Dosage: ONE UNIT OF UNSPECIFIED DOSAGE, ONCE DAILY
     Dates: start: 2013

REACTIONS (13)
  - Cardiac disorder [Unknown]
  - Gastrointestinal carcinoma [Unknown]
  - Carotid artery occlusion [Unknown]
  - Cerebrovascular accident [Unknown]
  - Angiopathy [Unknown]
  - Drug ineffective [Unknown]
  - Nervousness [Unknown]
  - Insomnia [Unknown]
  - Hyperphagia [Unknown]
  - Weight increased [Unknown]
  - Crying [Unknown]
  - Depressed mood [Unknown]
  - Renal disorder [Unknown]
